FAERS Safety Report 24091513 (Version 1)
Quarter: 2024Q3

REPORT INFORMATION
  Report Type: Spontaneous
  Country: CA (occurrence: CA)
  Receive Date: 20240715
  Receipt Date: 20240715
  Transmission Date: 20241016
  Serious: Yes (Hospitalization, Other)
  Sender: SANDOZ
  Company Number: CA-002147023-NVSC2023CA033941

PATIENT
  Sex: Male

DRUGS (10)
  1. EZETIMIBE [Suspect]
     Active Substance: EZETIMIBE
     Indication: Arteriosclerosis
     Dosage: UNK
     Route: 058
  2. EZETIMIBE [Suspect]
     Active Substance: EZETIMIBE
     Dosage: UNK
     Route: 059
  3. LEQVIO [Suspect]
     Active Substance: INCLISIRAN SODIUM
     Dosage: 248 MG/ 1.5 ML, OTHER (Q6 MONTHS)
     Route: 058
     Dates: start: 20230323
  4. LEQVIO [Suspect]
     Active Substance: INCLISIRAN SODIUM
     Indication: Arteriosclerosis
     Dosage: UNK
     Route: 058
     Dates: start: 20230523
  5. LEQVIO [Suspect]
     Active Substance: INCLISIRAN SODIUM
     Dosage: UNK
     Route: 065
     Dates: start: 20230710
  6. LEQVIO [Suspect]
     Active Substance: INCLISIRAN SODIUM
     Dosage: UNK
     Route: 065
     Dates: start: 20240110
  7. ROSUVASTATIN [Suspect]
     Active Substance: ROSUVASTATIN
     Indication: Arteriosclerosis
     Dosage: UNK
     Route: 058
  8. INSULIN NOS [Concomitant]
     Active Substance: INSULIN NOS
     Indication: Product used for unknown indication
     Dosage: UNK
     Route: 065
  9. REPATHA [Concomitant]
     Active Substance: EVOLOCUMAB
     Indication: Product used for unknown indication
     Dosage: UNK
     Route: 065
  10. STELARA [Concomitant]
     Active Substance: USTEKINUMAB
     Indication: Product used for unknown indication
     Dosage: UNK
     Route: 065

REACTIONS (9)
  - Blindness [Unknown]
  - Hernia [Unknown]
  - Colitis ulcerative [Unknown]
  - Hypersensitivity [Unknown]
  - Asthma [Unknown]
  - Cough [Unknown]
  - Haemorrhage [Recovered/Resolved]
  - Cardiac disorder [Unknown]
  - Product use in unapproved indication [Unknown]
